FAERS Safety Report 4987911-3 (Version None)
Quarter: 2006Q2

REPORT INFORMATION
  Report Type: 
  Country: None (occurrence: None)
  Receive Date: 20060501
  Receipt Date: 20060425
  Transmission Date: 20061013
  Serious: Yes (Hospitalization)
  Sender: FDA-Public Use
  Company Number: JP-ABBOTT-06P-087-0331633-00

PATIENT
  Age: 70 Year
  Sex: Female

DRUGS (2)
  1. CEFZON [Suspect]
     Indication: PROPHYLAXIS
     Route: 048
     Dates: start: 20060330, end: 20060401
  2. IOPAMIDOL [Concomitant]
     Indication: DRUG USE FOR UNKNOWN INDICATION
     Route: 050
     Dates: start: 20060331

REACTIONS (3)
  - C-REACTIVE PROTEIN INCREASED [None]
  - PYREXIA [None]
  - STOMATITIS [None]
